FAERS Safety Report 6254713-X (Version None)
Quarter: 2009Q3

REPORT INFORMATION
  Report Type: 
  Country: None (occurrence: None)
  Receive Date: 20090702
  Receipt Date: 20090623
  Transmission Date: 20100115
  Serious: Yes (Hospitalization, Other)
  Sender: FDA-Public Use
  Company Number: GB-PFIZER INC-2009231128

PATIENT
  Age: 22 Year

DRUGS (3)
  1. SOMATROPIN [Suspect]
     Indication: GROWTH HORMONE DEFICIENCY
     Dosage: 0.6 MG, 1X/DAY
     Route: 058
     Dates: start: 20060614
  2. CARBAMAZEPINE [Concomitant]
     Dosage: 200 MG, 2X/DAY
     Dates: start: 20041001
  3. LEVOTHYROXINE [Concomitant]
     Dosage: 50 UG, 1X/DAY
     Dates: start: 20080907

REACTIONS (1)
  - NEURILEMMOMA MALIGNANT [None]
